FAERS Safety Report 5142845-9 (Version None)
Quarter: 2006Q4

REPORT INFORMATION
  Report Type: 
  Country: None (occurrence: None)
  Receive Date: 20061030
  Receipt Date: 20061017
  Transmission Date: 20070319
  Serious: Yes (Disabling, Other)
  Sender: FDA-Public Use
  Company Number: ADV1-06

PATIENT
  Age: 3 Month
  Sex: Male

DRUGS (1)
  1. STREPTOMYCIN SULFATE [Suspect]
     Indication: TUBERCULOSIS

REACTIONS (4)
  - BRAIN DAMAGE [None]
  - CRANIAL NERVE DISORDER [None]
  - ENDOCRINE DISORDER [None]
  - HYPOTHALAMO-PITUITARY DISORDERS [None]
